FAERS Safety Report 5163016-6 (Version None)
Quarter: 2006Q4

REPORT INFORMATION
  Report Type: 
  Country: None (occurrence: None)
  Receive Date: 20061201
  Receipt Date: 20060606
  Transmission Date: 20070319
  Serious: Yes (Hospitalization)
  Sender: FDA-Public Use
  Company Number: ESWYE700507JUN06

PATIENT
  Sex: Female

DRUGS (12)
  1. ENBREL [Suspect]
     Indication: RHEUMATOID ARTHRITIS
     Route: 058
     Dates: start: 20041105, end: 20041116
  2. RISEDRONIC  ACID [Concomitant]
     Route: 065
  3. CALCIUM [Concomitant]
     Route: 065
  4. VITAMINS [Concomitant]
     Route: 065
  5. OMEPRAZOLE [Concomitant]
     Route: 065
  6. PILOCARPINE [Concomitant]
     Route: 065
  7. BISOPROLOL FUMARATE AND HYDROCHLOROTHIAZIDE [Concomitant]
     Route: 065
  8. BUDESONIDE [Concomitant]
     Route: 065
  9. ENALAPRIL MALEATE [Concomitant]
     Route: 065
  10. ACETYLSALICYLIC ACID SRT [Concomitant]
     Route: 065
  11. SIMVASTATIN [Concomitant]
     Route: 065
  12. CITALOPRAM HYDROBROMIDE [Concomitant]
     Route: 065

REACTIONS (5)
  - ABSCESS LIMB [None]
  - ERYTHEMA [None]
  - INFLAMMATION [None]
  - OEDEMA PERIPHERAL [None]
  - PAIN IN EXTREMITY [None]
